FAERS Safety Report 5661660-0 (Version None)
Quarter: 2008Q1

REPORT INFORMATION
  Report Type: 
  Country: None (occurrence: None)
  Receive Date: 20080312
  Receipt Date: 20080310
  Transmission Date: 20080703
  Serious: Yes (Death, Hospitalization, Other)
  Sender: FDA-Public Use
  Company Number: US-BRISTOL-MYERS SQUIBB COMPANY-14094197

PATIENT
  Age: 22 Year
  Sex: Female

DRUGS (2)
  1. CARBOPLATIN [Suspect]
     Indication: ASTROCYTOMA
     Dosage: REGIMEN 2: (465MG)09JAN08-09JAN08(1 DAY)INTRAVENOUS
     Route: 042
     Dates: start: 20071212, end: 20071212
  2. ENZASTAURIN [Suspect]
     Indication: ASTROCYTOMA
     Dosage: REGIMEN 2:(1125MG)05DEC07(1 DAY);(500MG)08DEC07-02DEC08(59 DAYS)
     Route: 048
     Dates: start: 20071205, end: 20071205

REACTIONS (7)
  - ASPIRATION [None]
  - CEREBROVASCULAR ACCIDENT [None]
  - HAEMOGLOBIN DECREASED [None]
  - PNEUMOTHORAX [None]
  - SOMNOLENCE [None]
  - THROMBOCYTOPENIA [None]
  - URINARY TRACT INFECTION [None]
